FAERS Safety Report 8017961-4 (Version None)
Quarter: 2012Q1

REPORT INFORMATION
  Report Type: 
  Country: None (occurrence: None)
  Receive Date: 20120103
  Receipt Date: 20111229
  Transmission Date: 20120608
  Serious: Yes (Other)
  Sender: FDA-Public Use
  Company Number: US-JNJFOC-20111101707

PATIENT
  Sex: Male

DRUGS (9)
  1. VITAMIN B-12 [Concomitant]
     Indication: NUTRITIONAL SUPPORT
     Route: 050
  2. EFFEXOR [Concomitant]
     Indication: MUSCLE RELAXANT THERAPY
     Dosage: TWO 150 MG
     Route: 048
  3. CODEINE [Concomitant]
     Indication: PAIN
     Route: 048
  4. HYDROCODONE BITARTRATE [Concomitant]
     Indication: PAIN
     Dosage: 10/325
     Route: 048
  5. INDAPAMIDE [Concomitant]
     Route: 048
     Dates: end: 20110601
  6. DURAGESIC-100 [Suspect]
     Indication: NEUROPATHY PERIPHERAL
     Route: 062
     Dates: start: 20110601, end: 20110701
  7. FENTANYL-100 [Suspect]
     Indication: NEUROPATHY PERIPHERAL
     Route: 062
     Dates: start: 20110701
  8. INDAPAMIDE [Concomitant]
     Indication: HYPERTENSION
     Route: 048
  9. PROPYLENE GLYCOL [Concomitant]
     Indication: IRRITABLE BOWEL SYNDROME
     Route: 048
     Dates: start: 20060101

REACTIONS (8)
  - WEIGHT INCREASED [None]
  - INADEQUATE ANALGESIA [None]
  - JOINT SWELLING [None]
  - HYPERSOMNIA [None]
  - HYPERTENSION [None]
  - GASTRIC DISORDER [None]
  - WRONG TECHNIQUE IN DRUG USAGE PROCESS [None]
  - PRODUCT ADHESION ISSUE [None]
